FAERS Safety Report 10010041 (Version 2)
Quarter: 2014Q1

REPORT INFORMATION
  Report Type: Spontaneous
  Country: US (occurrence: US)
  Receive Date: 20140312
  Receipt Date: 20140312
  Transmission Date: 20141002
  Serious: No
  Sender: FDA-Public Use
  Company Number: US-INCYTE CORPORATION-2013IN000379

PATIENT
  Sex: Male
  Weight: 73.56 kg

DRUGS (13)
  1. JAKAFI [Suspect]
     Indication: MYELODYSPLASTIC SYNDROME
     Dosage: 15 MG, BID
     Route: 048
     Dates: start: 201211
  2. PREDNISONE [Concomitant]
     Dosage: 10 MG, BID
  3. MORPHINE SULFATE [Concomitant]
     Dosage: 60 MG, BID
     Route: 048
  4. CEFTIN [Concomitant]
     Dosage: 500 MG, BID
     Route: 048
  5. OXYCODONE HCL [Concomitant]
     Dosage: 1 TABLET (10 MG) EVERY 4-6 HOURS
     Route: 048
  6. FOLIC ACID [Concomitant]
     Dosage: 1 MG
  7. GLIPIZIDE ER [Concomitant]
     Dosage: 2.5 MG, QD
     Route: 048
  8. CLINDAMYCIN PHOSPHATE [Concomitant]
     Dosage: 1% APPY TO AFFECTED AREAS 2 TIMES DAILY
     Route: 061
  9. METHOTREXATE [Concomitant]
     Dosage: 2.5 MG TAKE 8 PILLS AS DIRECTED
  10. IPRATROPIUM BROMIDE [Concomitant]
     Dosage: 21 MCG (1 SPRAY EACH NOSTRIL) EVERY DAY
     Route: 045
  11. VITAMIN D [Concomitant]
     Dosage: 1000 UT, QD
  12. FLUOROMETHOLONE [Concomitant]
     Dosage: 1 GTT, BID
     Route: 031
  13. GABAPENTIN [Concomitant]
     Dosage: 300 MG, QD
     Route: 048

REACTIONS (3)
  - General physical health deterioration [Not Recovered/Not Resolved]
  - Headache [Not Recovered/Not Resolved]
  - Drug ineffective [Not Recovered/Not Resolved]
